FAERS Safety Report 5337213-0 (Version None)
Quarter: 2007Q2

REPORT INFORMATION
  Report Type: 
  Country: None (occurrence: None)
  Receive Date: 20070529
  Receipt Date: 20070523
  Transmission Date: 20071010
  Serious: Yes (Other)
  Sender: FDA-Public Use
  Company Number: A0652642A

PATIENT
  Age: 72 Year
  Sex: Female

DRUGS (4)
  1. AVANDIA [Suspect]
     Dosage: 4MG TWICE PER DAY
     Route: 048
     Dates: start: 20040101, end: 20070521
  2. GLUCOPHAGE [Concomitant]
  3. VASOTEC [Concomitant]
  4. AMARYL [Concomitant]

REACTIONS (2)
  - ASTHENIA [None]
  - MONOPLEGIA [None]
